FAERS Safety Report 26181364 (Version 1)
Quarter: 2025Q4

REPORT INFORMATION
  Report Type: Spontaneous
  Country: EU (occurrence: EU)
  Receive Date: 20251221
  Receipt Date: 20251221
  Transmission Date: 20260118
  Serious: Yes (Hospitalization)
  Sender: NOVO NORDISK
  Company Number: EU-NOVOPROD-1585657

PATIENT
  Age: 50 Year
  Sex: Female

DRUGS (1)
  1. WEGOVY [Suspect]
     Active Substance: SEMAGLUTIDE
     Indication: Product used for unknown indication
     Dosage: 1.7 MG
     Dates: start: 202405, end: 202503

REACTIONS (3)
  - Hepatic enzyme increased [Unknown]
  - Abdominal pain [Unknown]
  - Inappropriate schedule of product administration [Recovered/Resolved]
